FAERS Safety Report 6303620-2 (Version None)
Quarter: 2009Q3

REPORT INFORMATION
  Report Type: 
  Country: None (occurrence: None)
  Receive Date: 20090810
  Receipt Date: 20090804
  Transmission Date: 20100115
  Serious: Yes (Life-Threatening)
  Sender: FDA-Public Use
  Company Number: JP-EISAI INC.-E2090-00804-SPO-JP

PATIENT
  Sex: Male

DRUGS (7)
  1. EXCEGRAN [Suspect]
     Route: 048
     Dates: start: 20090707, end: 20090721
  2. MAGMITT [Concomitant]
     Indication: CONSTIPATION
     Route: 048
     Dates: start: 20090525, end: 20090721
  3. FAMOGAST [Concomitant]
     Route: 048
     Dates: start: 20090525, end: 20090721
  4. TEGRETOL [Concomitant]
     Route: 048
     Dates: start: 20090120, end: 20090721
  5. TEGRETOL [Concomitant]
     Route: 048
     Dates: start: 20090525, end: 20090721
  6. MYSLEE [Concomitant]
     Indication: INSOMNIA
     Dosage: UNKNOWN
     Route: 048
     Dates: start: 20090525, end: 20090721
  7. SOLANAX [Concomitant]
     Indication: ANXIETY
     Dosage: UNKNOWN
     Dates: start: 20090713, end: 20090721

REACTIONS (3)
  - NEUTROPHIL PERCENTAGE DECREASED [None]
  - PLATELET COUNT DECREASED [None]
  - WHITE BLOOD CELL COUNT DECREASED [None]
